FAERS Safety Report 5676382-X (Version None)
Quarter: 2008Q1

REPORT INFORMATION
  Report Type: 
  Country: None (occurrence: None)
  Receive Date: 20080321
  Receipt Date: 20080313
  Transmission Date: 20080703
  Serious: Yes (Death)
  Sender: FDA-Public Use
  Company Number: ES-PFIZER INC-2008023482

PATIENT
  Age: 79 Year
  Sex: Female

DRUGS (2)
  1. PIROXICAM [Suspect]
     Indication: MYALGIA
     Route: 048
     Dates: start: 20080111, end: 20080116
  2. PARACETAMOL [Suspect]
     Indication: MYALGIA
     Route: 048
     Dates: start: 20080111, end: 20080116

REACTIONS (5)
  - ANAEMIA [None]
  - HYPOVOLAEMIC SHOCK [None]
  - RENAL FAILURE [None]
  - RETROPERITONEAL HAEMATOMA [None]
  - RHABDOMYOLYSIS [None]
